FAERS Safety Report 6796359-0 (Version None)
Quarter: 2010Q2

REPORT INFORMATION
  Report Type: 
  Country: None (occurrence: None)
  Receive Date: 20100622
  Receipt Date: 20100607
  Transmission Date: 20101027
  Serious: Yes (Life-Threatening, Hospitalization, Congenital Anomaly)
  Sender: FDA-Public Use
  Company Number: 1-22756207

PATIENT
  Sex: Female
  Weight: 2.9937 kg

DRUGS (1)
  1. LORAZEPAM [Suspect]
     Dosage: INTRAUERINE
     Route: 015

REACTIONS (7)
  - CONGENITAL FLOPPY INFANT [None]
  - CONGENITAL PNEUMONIA [None]
  - DRUG WITHDRAWAL SYNDROME NEONATAL [None]
  - KLEBSIELLA INFECTION [None]
  - MATERNAL DRUGS AFFECTING FOETUS [None]
  - NECROTISING COLITIS [None]
  - URINARY TRACT INFECTION NEONATAL [None]
